FAERS Safety Report 9125851 (Version 2)
Quarter: 2013Q2

REPORT INFORMATION
  Report Type: Spontaneous
  Country: JP (occurrence: JP)
  Receive Date: 20130121
  Receipt Date: 20130410
  Transmission Date: 20140414
  Serious: Yes (Disabling)
  Sender: FDA-Public Use
  Company Number: JP-JNJFOC-20130107132

PATIENT
  Age: 61 Year
  Sex: Male
  Weight: 64 kg

DRUGS (14)
  1. XARELTO [Suspect]
     Indication: CEREBROVASCULAR ACCIDENT PROPHYLAXIS
     Route: 048
     Dates: start: 20121107, end: 20130313
  2. XARELTO [Suspect]
     Indication: ATRIAL FIBRILLATION
     Route: 048
     Dates: start: 20121107, end: 20130313
  3. NAIXAN [Concomitant]
     Route: 048
     Dates: start: 20121026, end: 20130313
  4. GEMZAR [Concomitant]
     Indication: GALLBLADDER CANCER
     Route: 042
     Dates: start: 20121210, end: 20121210
  5. GEMZAR [Concomitant]
     Indication: GALLBLADDER CANCER
     Route: 042
     Dates: start: 20121116, end: 20121116
  6. BRIPLATIN [Concomitant]
     Indication: GALLBLADDER CANCER
     Route: 042
     Dates: start: 20121116
  7. BRIPLATIN [Concomitant]
     Indication: GALLBLADDER CANCER
     Route: 042
     Dates: start: 20121210
  8. GASMOTIN [Concomitant]
     Route: 048
     Dates: start: 20121002, end: 20130313
  9. DEPAS [Concomitant]
     Route: 048
     Dates: start: 20121020, end: 20130313
  10. PARIET [Concomitant]
     Route: 048
     Dates: start: 20121031, end: 20130313
  11. FORSENID [Concomitant]
     Route: 048
     Dates: start: 20121002, end: 20130313
  12. OSALMID [Concomitant]
     Route: 048
     Dates: start: 20130207, end: 20130313
  13. ELTROMBOPAG OLAMINE [Concomitant]
     Route: 048
     Dates: start: 20130305, end: 20130313
  14. CISPLATIN [Concomitant]
     Indication: GALLBLADDER CANCER
     Route: 065

REACTIONS (2)
  - Cerebral infarction [Recovered/Resolved with Sequelae]
  - Cerebral haemorrhage [Recovered/Resolved with Sequelae]
